FAERS Safety Report 5807239-9 (Version None)
Quarter: 2008Q3

REPORT INFORMATION
  Report Type: 
  Country: None (occurrence: None)
  Receive Date: 20080711
  Receipt Date: 20080702
  Transmission Date: 20090109
  Serious: Yes (Hospitalization, Other)
  Sender: FDA-Public Use
  Company Number: JP-JNJFOC-20070403147

PATIENT
  Sex: Female
  Weight: 46 kg

DRUGS (16)
  1. REMICADE [Suspect]
     Dosage: INITIAL DOSE
     Route: 042
  2. REMICADE [Suspect]
     Dosage: INITIAL DOSE
     Route: 042
  3. REMICADE [Suspect]
     Dosage: INITIAL DOSE
     Route: 042
  4. REMICADE [Suspect]
     Dosage: INITIAL DOSE
     Route: 042
  5. REMICADE [Suspect]
     Indication: RHEUMATOID ARTHRITIS
     Dosage: INITIAL DOSE
     Route: 042
  6. STEROIDS [Concomitant]
     Indication: RHEUMATOID ARTHRITIS
     Route: 065
  7. GOLD PREPARATIONS [Concomitant]
     Indication: RHEUMATOID ARTHRITIS
     Route: 065
  8. DMARDS [Concomitant]
     Indication: RHEUMATOID ARTHRITIS
     Route: 065
  9. NSAIDS [Concomitant]
     Route: 065
  10. PREDNISOLONE [Concomitant]
     Route: 048
  11. PREDNISOLONE [Concomitant]
     Route: 048
  12. PREDNISOLONE [Concomitant]
     Route: 048
  13. PREDNISOLONE [Concomitant]
     Route: 048
  14. SULFASALAZINE [Concomitant]
     Route: 048
  15. RHEUMATREX [Concomitant]
     Indication: RHEUMATOID ARTHRITIS
     Route: 048
  16. MARZULENE-S [Concomitant]
     Route: 048

REACTIONS (4)
  - POLYMYOSITIS [None]
  - RHEUMATOID ARTHRITIS [None]
  - THROMBOPHLEBITIS [None]
  - TUBERCULOUS PLEURISY [None]
